FAERS Safety Report 9114169 (Version 2)
Quarter: 2013Q1

REPORT INFORMATION
  Report Type: Report from Study
  Country: GR (occurrence: GR)
  Receive Date: 20130208
  Receipt Date: 20130329
  Transmission Date: 20140127
  Serious: Yes (Death)
  Sender: FDA-Public Use
  Company Number: GR-ABBOTT-13P-066-1045314-00

PATIENT
  Age: 79 Year
  Sex: Male
  Weight: 72.7 kg

DRUGS (8)
  1. ZEMPLAR [Suspect]
     Indication: RENAL FAILURE CHRONIC
     Dosage: 4.5 MCG / WEEK
     Route: 042
     Dates: start: 20120625, end: 20130130
  2. ZEMPLAR [Suspect]
     Indication: HAEMODIALYSIS
  3. ZEMPLAR [Suspect]
     Indication: HYPERPARATHYROIDISM SECONDARY
  4. AMLODIPINE [Concomitant]
     Indication: HYPERTENSION
     Route: 048
  5. CARVEPEN [Concomitant]
     Indication: CORONARY ARTERY DISEASE
  6. PLAVIX [Concomitant]
     Indication: CORONARY ARTERY DISEASE
  7. URSODEOXYCHOLIC ACID [Concomitant]
     Indication: CHOLECYSTECTOMY
  8. FOLIC ACID [Concomitant]
     Indication: ANAEMIA

REACTIONS (1)
  - Sudden death [Fatal]
